FAERS Safety Report 8910658 (Version 1)
Quarter: 2012Q4

REPORT INFORMATION
  Report Type: Spontaneous
  Country: US (occurrence: None)
  Receive Date: 20121116
  Receipt Date: 20121116
  Transmission Date: 20130627
  Serious: No
  Sender: FDA-Public Use
  Company Number: None

PATIENT
  Age: 52 Year
  Sex: Male
  Weight: 90.72 kg

DRUGS (1)
  1. BETAMETHASONE [Suspect]
     Indication: INTERVERTEBRAL DISC BULGING
     Dosage: 2 injections  Epidural
     Route: 008
     Dates: start: 20120410, end: 20120718

REACTIONS (11)
  - Influenza like illness [None]
  - Neck pain [None]
  - Chest pain [None]
  - Musculoskeletal stiffness [None]
  - Pain in jaw [None]
  - Oropharyngeal pain [None]
  - Muscle spasms [None]
  - Hypertension [None]
  - Renal disorder [None]
  - Vision blurred [None]
  - Blood urea nitrogen/creatinine ratio increased [None]
